FAERS Safety Report 18710979 (Version 2)
Quarter: 2021Q1

REPORT INFORMATION
  Report Type: Spontaneous
  Country: US (occurrence: US)
  Receive Date: 20210107
  Receipt Date: 20210311
  Transmission Date: 20210419
  Serious: No
  Sender: FDA-Public Use
  Company Number: US-BAYER-2021-010672

PATIENT
  Age: 18 Year
  Sex: Female

DRUGS (1)
  1. KYLEENA [Suspect]
     Active Substance: LEVONORGESTREL
     Indication: CONTRACEPTION
     Dosage: 17.5?G PER DAY, CONTINUOUSLY
     Route: 015
     Dates: start: 20201116, end: 20201220

REACTIONS (4)
  - Device expulsion [Recovered/Resolved]
  - Abdominal pain lower [None]
  - Back pain [None]
  - Menorrhagia [None]

NARRATIVE: CASE EVENT DATE: 2020
